FAERS Safety Report 9311054 (Version 1)
Quarter: 2013Q1

REPORT INFORMATION
  Report Type: Spontaneous
  Country: US (occurrence: None)
  Receive Date: 20130114
  Receipt Date: 20130114
  Transmission Date: 20140127
  Serious: Yes (Other)
  Sender: FDA-Public Use
  Company Number: 1212-730

PATIENT
  Age: 86 Year
  Sex: 0

DRUGS (12)
  1. EYLEA (AFLIBERCEPT) (INJECTION) (AFLIBERCEPT) [Suspect]
     Indication: AGE-RELATED MACULAR DEGENERATION
     Dosage: 2 MG, 1 IN 1 M, INTRAVITREAL
     Route: 031
     Dates: start: 20120908, end: 20121123
  2. BIOTIN (BIOTIN) [Concomitant]
  3. CENTRUM SILVER (CENTRUM SILVER/02363801/) [Concomitant]
  4. BONIVA (IBANDRONATE SODIUM) [Concomitant]
  5. COUMADIN (WARFARIN SODIUM) [Concomitant]
  6. FUROSEMIDE (FUROSEMIDE) [Concomitant]
  7. LEVOTHYROXINE (LEVOTHYROXINE) [Concomitant]
  8. LISINOPRIL (LISINOPRIL) [Concomitant]
  9. METOPROLOL TARTRATE (METOPROLOL TARTRATE) [Concomitant]
  10. SIMVASTATIN (SIMVASTATIN) [Concomitant]
  11. VICODIN (VICODIN) [Concomitant]
  12. TYLENOL (PARACETAMOL) [Concomitant]

REACTIONS (2)
  - Vitreous haemorrhage [None]
  - Vitreous floaters [None]
